FAERS Safety Report 23418469 (Version 2)
Quarter: 2025Q2

REPORT INFORMATION
  Report Type: Spontaneous
  Country: US (occurrence: US)
  Receive Date: 20240118
  Receipt Date: 20250404
  Transmission Date: 20250717
  Serious: No
  Sender: SUNOVION
  Company Number: US-UROVANT SCIENCES GMBH-202309-URV-001866

PATIENT

DRUGS (1)
  1. GEMTESA [Suspect]
     Active Substance: VIBEGRON
     Indication: Product used for unknown indication
     Dosage: 75 MG, QD
     Route: 048

REACTIONS (2)
  - Post-acute COVID-19 syndrome [Not Recovered/Not Resolved]
  - Expired product administered [Unknown]
